FAERS Safety Report 5689069-4 (Version None)
Quarter: 2008Q1

REPORT INFORMATION
  Report Type: 
  Country: None (occurrence: None)
  Receive Date: 20080331
  Receipt Date: 20080325
  Transmission Date: 20080703
  Serious: Yes (Other)
  Sender: FDA-Public Use
  Company Number: B0514297A

PATIENT
  Sex: Female

DRUGS (1)
  1. AROPAX [Suspect]
     Indication: DEPRESSION
     Route: 048

REACTIONS (2)
  - LOSS OF CONSCIOUSNESS [None]
  - TEMPORAL LOBE EPILEPSY [None]
